FAERS Safety Report 8180664-X (Version None)
Quarter: 2012Q1

REPORT INFORMATION
  Report Type: 
  Country: None (occurrence: None)
  Receive Date: 20120302
  Receipt Date: 20120222
  Transmission Date: 20120608
  Serious: Yes (Other)
  Sender: FDA-Public Use
  Company Number: CN-JNJFOC-20120213638

PATIENT

DRUGS (1)
  1. DURAGESIC-100 [Suspect]
     Indication: CANCER PAIN
     Route: 062

REACTIONS (12)
  - RESPIRATORY DEPRESSION [None]
  - ABDOMINAL DISCOMFORT [None]
  - CONSTIPATION [None]
  - BRADYCARDIA [None]
  - SOMNOLENCE [None]
  - INCORRECT ROUTE OF DRUG ADMINISTRATION [None]
  - DIZZINESS [None]
  - PRURITUS [None]
  - NAUSEA [None]
  - VOMITING [None]
  - DYSURIA [None]
  - BREAKTHROUGH PAIN [None]
